FAERS Safety Report 4459121-X (Version None)
Quarter: 2004Q3

REPORT INFORMATION
  Report Type: 
  Country: None (occurrence: None)
  Receive Date: 20040920
  Receipt Date: 20040920
  Transmission Date: 20050211
  Serious: Yes (Other)
  Sender: FDA-Public Use
  Company Number: None

PATIENT
  Sex: Female

DRUGS (2)
  1. OXYCODONE AND ACETAMINOPHEN [Suspect]
     Indication: PAIN
     Dosage: QID PRN
  2. OXYCODONE AND ACETAMINOPHEN [Suspect]
     Indication: SICKLE CELL ANAEMIA WITH CRISIS
     Dosage: QID PRN

REACTIONS (1)
  - PRURITUS GENERALISED [None]
